FAERS Safety Report 21116892 (Version 1)
Quarter: 2022Q3

REPORT INFORMATION
  Report Type: Spontaneous
  Country: JP (occurrence: JP)
  Receive Date: 20220722
  Receipt Date: 20220722
  Transmission Date: 20221027
  Serious: Yes (Other)
  Sender: FDA-Public Use
  Company Number: JP-SUN PHARMACEUTICAL INDUSTRIES LTD-2022R1-344852

PATIENT
  Age: 52 Year
  Sex: Male

DRUGS (2)
  1. DOCETAXEL [Suspect]
     Active Substance: DOCETAXEL
     Indication: Lung adenocarcinoma stage IV
     Dosage: UNK,60 MG/M2 7 COURSES
     Route: 065
  2. RAMUCIRUMAB [Suspect]
     Active Substance: RAMUCIRUMAB
     Indication: Lung adenocarcinoma stage IV
     Dosage: UNK,10 MG/KG, EVERY 3  WEEKS,7 COURSES
     Route: 065

REACTIONS (4)
  - Therapy partial responder [Unknown]
  - Malaise [Unknown]
  - Myalgia [Unknown]
  - Ischaemic enteritis [Unknown]

NARRATIVE: CASE EVENT DATE: 20180601
